FAERS Safety Report 4716432-8 (Version None)
Quarter: 2005Q3

REPORT INFORMATION
  Report Type: 
  Country: None (occurrence: None)
  Receive Date: 20050719
  Receipt Date: 20050707
  Transmission Date: 20060218
  Serious: Yes (Death)
  Sender: FDA-Public Use
  Company Number: US-JNJFOC-20050701653

PATIENT
  Sex: Male

DRUGS (9)
  1. INFLIXIMAB [Suspect]
     Indication: RHEUMATOID ARTHRITIS
     Route: 042
  2. ASPIRIN [Concomitant]
  3. DARVOCET-N 100 [Concomitant]
  4. DARVOCET-N 100 [Concomitant]
  5. FOLIC ACID [Concomitant]
  6. METHOTREXATE [Concomitant]
  7. PLAQUENIL [Concomitant]
  8. ACTONEL [Concomitant]
  9. PREDNISONE [Concomitant]

REACTIONS (2)
  - LUNG NEOPLASM MALIGNANT [None]
  - MESOTHELIOMA [None]
